FAERS Safety Report 25684270 (Version 1)
Quarter: 2025Q3

REPORT INFORMATION
  Report Type: Spontaneous
  Country: RU (occurrence: RU)
  Receive Date: 20250815
  Receipt Date: 20250815
  Transmission Date: 20251020
  Serious: Yes (Other)
  Sender: ACCORD
  Company Number: RU-Accord-499468

PATIENT
  Age: 22 Month
  Sex: Male
  Weight: 16.15 kg

DRUGS (4)
  1. LEVOTHYROXINE [Suspect]
     Active Substance: LEVOTHYROXINE
     Indication: Hypothyroidism
     Dosage: 1 YEAR 2 MONTHS
  2. LEVOTHYROXINE [Suspect]
     Active Substance: LEVOTHYROXINE
     Indication: Hypothyroidism
     Dosage: 1 YEAR 2 MONTHS 21 DAYS
  3. LEVOTHYROXINE [Suspect]
     Active Substance: LEVOTHYROXINE
     Indication: Hypothyroidism
     Dosage: 1 YEAR 3 MONTHS
  4. LEVOTHYROXINE [Suspect]
     Active Substance: LEVOTHYROXINE
     Indication: Hypothyroidism
     Dosage: 1 YEAR 4 MONTHS; 1 YEAR 7 MONTHS

REACTIONS (1)
  - Hyperthyroidism [Unknown]
